FAERS Safety Report 8223724-7 (Version None)
Quarter: 2012Q1

REPORT INFORMATION
  Report Type: 
  Country: None (occurrence: None)
  Receive Date: 20120316
  Receipt Date: 20120120
  Transmission Date: 20120608
  Serious: Yes (Hospitalization)
  Sender: FDA-Public Use
  Company Number: 2012SP002602

PATIENT
  Age: 62 Year
  Sex: Male

DRUGS (8)
  1. RIFAXIMIN [Concomitant]
  2. ESKIM [Concomitant]
  3. LUVION /00252501/ [Concomitant]
  4. BOCEPREVIR (SCH-503034) [Suspect]
     Indication: CHRONIC HEPATITIS
     Dosage: 2400 MG;QD;PO
     Route: 048
     Dates: start: 20111214, end: 20120104
  5. PEG-INTRON [Suspect]
     Indication: CHRONIC HEPATITIS
     Dosage: 100 MCG;QW;IM
     Route: 030
     Dates: start: 20111116, end: 20120104
  6. LANSOPRAZOLE [Concomitant]
  7. RIBAVIRIN [Suspect]
     Indication: CHRONIC HEPATITIS
     Dosage: 1000 MG;QD;PO
     Route: 048
     Dates: start: 20111116, end: 20120104
  8. LASIX [Concomitant]

REACTIONS (1)
  - ASCITES [None]
